FAERS Safety Report 9036803 (Version 1)
Quarter: 2012Q4

REPORT INFORMATION
  Report Type: Spontaneous
  Country: US (occurrence: None)
  Receive Date: 20121213
  Receipt Date: 20121213
  Transmission Date: 20130627
  Serious: Yes (Hospitalization, Other)
  Sender: FDA-Public Use
  Company Number: 2012034180

PATIENT
  Age: 20 Year
  Sex: Male

DRUGS (2)
  1. FACTOR VIII (ANTIHAEMOPHILIC FACTOR) [Suspect]
  2. FACTOR VIII (ANTIHAEMOPHILIC FACTOR) [Suspect]

REACTIONS (3)
  - Wound secretion [None]
  - Gastrointestinal haemorrhage [None]
  - Anastomotic haemorrhage [None]
